FAERS Safety Report 9680342 (Version 1)
Quarter: 2013Q4

REPORT INFORMATION
  Report Type: Report from Study
  Country: US (occurrence: US)
  Receive Date: 20131111
  Receipt Date: 20131111
  Transmission Date: 20140711
  Serious: Yes (Other)
  Sender: FDA-Public Use
  Company Number: US-ROCHE-1301226

PATIENT
  Sex: Male
  Weight: 63.56 kg

DRUGS (3)
  1. LUCENTIS [Suspect]
     Indication: AGE-RELATED MACULAR DEGENERATION
     Route: 050
     Dates: start: 2009
  2. LIPITOR [Concomitant]
     Indication: BLOOD CHOLESTEROL INCREASED
     Route: 048
     Dates: start: 2009
  3. FLOMAX (UNITED STATES) [Concomitant]
     Indication: PROSTATOMEGALY
     Route: 048
     Dates: start: 2007

REACTIONS (3)
  - Blindness unilateral [Unknown]
  - Visual acuity reduced [Not Recovered/Not Resolved]
  - Anxiety [Not Recovered/Not Resolved]
